FAERS Safety Report 19745279 (Version 1)
Quarter: 2021Q3

REPORT INFORMATION
  Report Type: Spontaneous
  Country: PL (occurrence: PL)
  Receive Date: 20210825
  Receipt Date: 20210825
  Transmission Date: 20211014
  Serious: Yes (Life-Threatening, Hospitalization)
  Sender: FDA-Public Use
  Company Number: PL-MYLANLABS-2021M1054287

PATIENT
  Age: 54 Year
  Sex: Female

DRUGS (10)
  1. CELECOXIB. [Interacting]
     Active Substance: CELECOXIB
     Indication: BACK PAIN
     Dosage: 200 MG
  2. RISPERIDONE. [Interacting]
     Active Substance: RISPERIDONE
     Indication: SCHIZOPHRENIA
     Dosage: 4 MILLIGRAM, QD
  3. PERINDOPRIL [Interacting]
     Active Substance: PERINDOPRIL
     Indication: HYPERTENSION
     Dosage: UNK
  4. METOPROLOL. [Interacting]
     Active Substance: METOPROLOL
     Indication: PRODUCT USED FOR UNKNOWN INDICATION
     Dosage: UNK
  5. PERINDOPRIL [Interacting]
     Active Substance: PERINDOPRIL
     Indication: HYPOTENSION
  6. GINKGO BILOBA /01003104/ [Interacting]
     Active Substance: GINKGO BILOBA LEAF EXTRACT
     Indication: SOMNOLENCE
     Dosage: 240 MG, PER DAY
  7. NEBIVOLOL. [Interacting]
     Active Substance: NEBIVOLOL
     Indication: HYPERTENSION
     Dosage: 5 MG, PER DAY
  8. CELECOXIB. [Interacting]
     Active Substance: CELECOXIB
     Dosage: 200 MILLIGRAM, QD
  9. ATORVASTATIN [Interacting]
     Active Substance: ATORVASTATIN
     Indication: DYSLIPIDAEMIA
     Dosage: 40 MG, PER DAY
  10. AMLODIPINE [Suspect]
     Active Substance: AMLODIPINE BESYLATE
     Indication: HYPERTENSION
     Dosage: 10 MG, PER DAY

REACTIONS (6)
  - Tongue oedema [Unknown]
  - Bradycardia [Unknown]
  - Lip oedema [Unknown]
  - Swollen tongue [Unknown]
  - Drug interaction [Unknown]
  - Angioedema [Unknown]
